FAERS Safety Report 19440895 (Version 1)
Quarter: 2021Q2

REPORT INFORMATION
  Report Type: Spontaneous
  Country: SI (occurrence: SI)
  Receive Date: 20210621
  Receipt Date: 20210621
  Transmission Date: 20210717
  Serious: Yes (Other)
  Sender: FDA-Public Use
  Company Number: SI-ALIMERA SCIENCES INC.-SI-A16013-21-000120

PATIENT

DRUGS (1)
  1. ILUVIEN [Suspect]
     Active Substance: FLUOCINOLONE ACETONIDE
     Indication: UVEITIS
     Dosage: 0.25 MICROGRAM, QD
     Route: 031
     Dates: start: 20210604

REACTIONS (2)
  - Impaired healing [Unknown]
  - Hypotony of eye [Unknown]

NARRATIVE: CASE EVENT DATE: 20210604
